FAERS Safety Report 12254460 (Version 1)
Quarter: 2016Q2

REPORT INFORMATION
  Report Type: Other
  Country: GB (occurrence: GB)
  Receive Date: 20160411
  Receipt Date: 20160411
  Transmission Date: 20160815
  Serious: Yes (Hospitalization)
  Sender: FDA-Public Use
  Company Number: GB-MYLANLABS-2016M1014473

PATIENT

DRUGS (9)
  1. OMEPRAZOLE. [Concomitant]
     Active Substance: OMEPRAZOLE
     Dosage: 20 MG, BID
  2. FUROSEMIDE. [Concomitant]
     Active Substance: FUROSEMIDE
     Dosage: 40 MG, QD
  3. CARBOMER [Concomitant]
     Active Substance: CARBOMER
     Dosage: 0.2 %, QD (IN THE EVENING)
  4. OXYBUTYNIN [Concomitant]
     Active Substance: OXYBUTYNIN
     Dosage: 2.5 MG, BID
  5. SIMVASTATIN. [Suspect]
     Active Substance: SIMVASTATIN
     Dosage: 40 MG, QD (IN THE EVENING)
  6. NITRAZEPAM [Concomitant]
     Active Substance: NITRAZEPAM
     Dosage: 10 ML, QD (IN THE EVENING)
  7. PARACETAMOL [Concomitant]
     Active Substance: ACETAMINOPHEN
     Dosage: 1 G, TID
  8. ASPIRIN                            /00002701/ [Concomitant]
     Active Substance: ASPIRIN
     Dosage: 75 MG, QD
  9. BISOPROLOL [Concomitant]
     Active Substance: BISOPROLOL
     Dosage: 2.5 MG, QD

REACTIONS (4)
  - Hemiplegia [Unknown]
  - Liver function test increased [Recovering/Resolving]
  - Dysarthria [Unknown]
  - Facial paralysis [Unknown]
